FAERS Safety Report 7335083-2 (Version None)
Quarter: 2011Q1

REPORT INFORMATION
  Report Type: 
  Country: None (occurrence: None)
  Receive Date: 20110307
  Receipt Date: 20110222
  Transmission Date: 20110831
  Serious: Yes (Death, Hospitalization)
  Sender: FDA-Public Use
  Company Number: US-ELI_LILLY_AND_COMPANY-US201102006733

PATIENT
  Age: 60 Year
  Sex: Female

DRUGS (5)
  1. FLUOXETINE HYDROCHLORIDE [Suspect]
  2. OLANZAPINE [Suspect]
  3. GABAPENTIN [Concomitant]
  4. AMITRIPTYLINE [Concomitant]
  5. ALPRAZOLAM [Concomitant]

REACTIONS (1)
  - COMPLETED SUICIDE [None]
